FAERS Safety Report 7325537-7 (Version None)
Quarter: 2011Q1

REPORT INFORMATION
  Report Type: 
  Country: None (occurrence: None)
  Receive Date: 20110302
  Receipt Date: 20110220
  Transmission Date: 20110831
  Serious: Yes (Hospitalization)
  Sender: FDA-Public Use
  Company Number: US-PERRIGO-11US001466

PATIENT
  Sex: Female

DRUGS (1)
  1. TUSSIN PE CF LIQ 516 [Suspect]
     Indication: PRODUCT USED FOR UNKNOWN INDICATION
     Dosage: UNK
     Route: 048
     Dates: start: 20110201, end: 20110201

REACTIONS (1)
  - HYPERSENSITIVITY [None]
